FAERS Safety Report 22372908 (Version 1)
Quarter: 2023Q2

REPORT INFORMATION
  Report Type: Spontaneous
  Country: NL (occurrence: NL)
  Receive Date: 20230526
  Receipt Date: 20230526
  Transmission Date: 20230722
  Serious: Yes (Hospitalization)
  Sender: FDA-Public Use
  Company Number: None

PATIENT
  Age: 69 Year
  Sex: Male
  Weight: 63 kg

DRUGS (13)
  1. SIMVASTATIN [Interacting]
     Active Substance: SIMVASTATIN
     Indication: Myocardial infarction
     Dosage: 1 DD 1 TABLET
     Dates: start: 20070928, end: 20230419
  2. REMIFENTANIL HYDROCHLORIDE [Interacting]
     Active Substance: REMIFENTANIL HYDROCHLORIDE
     Indication: Endoscopic retrograde cholangiopancreatography
     Dosage: 1 DOSAGE FORM
     Dates: start: 20230418
  3. KETAMINE HYDROCHLORIDE [Interacting]
     Active Substance: KETAMINE HYDROCHLORIDE
     Indication: Endoscopic retrograde cholangiopancreatography
     Dosage: 1 DOSAGE FORM
     Dates: start: 20230418
  4. PROPOFOL [Interacting]
     Active Substance: PROPOFOL
     Indication: Endoscopic retrograde cholangiopancreatography
     Dosage: ONE-TIME DOSE WITH ERCP
     Dates: start: 20230418
  5. ASPIRIN [Concomitant]
     Active Substance: ASPIRIN
     Dosage: TABLET, 80 MG (MILLIGRAM)
  6. TRESIBA [Concomitant]
     Active Substance: INSULIN DEGLUDEC
     Dosage: INJECTION FLUID, 100 UNITS/ML (UNITS PER MILLILITER)
  7. METFORMIN [Concomitant]
     Active Substance: METFORMIN HYDROCHLORIDE
     Dosage: TABLET, 850 MG (MILLIGRAM)
  8. METOPROLOL [Concomitant]
     Active Substance: METOPROLOL
     Dosage: TABLET, 50 MG (MILLIGRAM)
  9. OXYCODONE HYDROCHLORIDE [Concomitant]
     Active Substance: OXYCODONE HYDROCHLORIDE
     Dosage: SMELTTABLET, 5 MG (MILLIGRAM)
  10. OXYCONTIN [Concomitant]
     Active Substance: OXYCODONE HYDROCHLORIDE
     Dosage: TABLET WITH REGULATED RELEASE, 10 MG (MILLIGRAM)
  11. INSULIN ASPART [Concomitant]
     Active Substance: INSULIN ASPART
     Dosage: INJECTION FLUID, 100 UNITS/ML (UNITS PER MILLILITER)
  12. NITROGLYCERIN [Concomitant]
     Active Substance: NITROGLYCERIN
     Dosage: SPRAY, 0.4 MG/DOSE (MILLIGRAM PER DOSE)
  13. IRBESARTAN [Concomitant]
     Active Substance: IRBESARTAN
     Dosage: TABLET, 150 MG (MILLIGRAM)

REACTIONS (3)
  - Drug interaction [Unknown]
  - Hyperkalaemia [Unknown]
  - Rhabdomyolysis [Unknown]

NARRATIVE: CASE EVENT DATE: 20230419
